FAERS Safety Report 23858797 (Version 1)
Quarter: 2024Q2

REPORT INFORMATION
  Report Type: Spontaneous
  Country: US (occurrence: US)
  Receive Date: 20240515
  Receipt Date: 20240515
  Transmission Date: 20240716
  Serious: No
  Sender: FDA-Public Use
  Company Number: US-GILEAD-2024-0672911

PATIENT
  Age: 61 Year
  Sex: Male

DRUGS (1)
  1. LENACAPAVIR [Suspect]
     Active Substance: LENACAPAVIR
     Indication: HIV infection
     Dosage: 927 MG, EVERY 6 MONTHS
     Route: 058
     Dates: start: 202307

REACTIONS (2)
  - Pain [Unknown]
  - Injection site swelling [Unknown]
